FAERS Safety Report 18724013 (Version 1)
Quarter: 2021Q1

REPORT INFORMATION
  Report Type: Spontaneous
  Country: US (occurrence: US)
  Receive Date: 20210107
  Receipt Date: 20210107
  Transmission Date: 20210419
  Serious: Yes (Hospitalization)
  Sender: FDA-Public Use
  Company Number: None

PATIENT
  Age: 55 Year
  Sex: Female

DRUGS (17)
  1. GABAPENTIN. [Concomitant]
     Active Substance: GABAPENTIN
  2. FOLIC ACID. [Concomitant]
     Active Substance: FOLIC ACID
  3. FAMOTIDINE. [Concomitant]
     Active Substance: FAMOTIDINE
  4. TIZANIDINE. [Concomitant]
     Active Substance: TIZANIDINE
  5. WARFARIN [Concomitant]
     Active Substance: WARFARIN
  6. FUROSEMIDE. [Concomitant]
     Active Substance: FUROSEMIDE
  7. METOPROLOL. [Concomitant]
     Active Substance: METOPROLOL
  8. OPSUMIT [Suspect]
     Active Substance: MACITENTAN
     Indication: PULMONARY HYPERTENSION
     Route: 048
     Dates: start: 20160923
  9. METHOTREXATE. [Concomitant]
     Active Substance: METHOTREXATE
  10. FERROUS SULFATE. [Concomitant]
     Active Substance: FERROUS SULFATE
  11. TREPROSTINIL. [Concomitant]
     Active Substance: TREPROSTINIL
  12. SILDENAFIL. [Concomitant]
     Active Substance: SILDENAFIL
  13. HYDROCORTISONE TOP CREAM [Concomitant]
  14. PREDNISONE. [Concomitant]
     Active Substance: PREDNISONE
  15. FOSAMAX [Concomitant]
     Active Substance: ALENDRONATE SODIUM
  16. ENBREL [Concomitant]
     Active Substance: ETANERCEPT
  17. SPIRONOLACTONE. [Concomitant]
     Active Substance: SPIRONOLACTONE

REACTIONS (2)
  - Meningioma [None]
  - Seizure [None]

NARRATIVE: CASE EVENT DATE: 20201209
